FAERS Safety Report 14952136 (Version 2)
Quarter: 2020Q4

REPORT INFORMATION
  Report Type: Spontaneous
  Country: US (occurrence: US)
  Receive Date: 20180530
  Receipt Date: 20201014
  Transmission Date: 20210113
  Serious: Yes (Death, Hospitalization)
  Sender: FDA-Public Use
  Company Number: US-BAYER-2018-055584

PATIENT
  Age: 76 Year
  Sex: Female

DRUGS (10)
  1. ATORVASTATIN CALCIUM. [Concomitant]
     Active Substance: ATORVASTATIN CALCIUM
     Indication: PRODUCT USED FOR UNKNOWN INDICATION
     Dosage: 10 MG, UNK
     Route: 065
     Dates: start: 20151019
  2. XARELTO [Suspect]
     Active Substance: RIVAROXABAN
     Indication: THROMBOSIS PROPHYLAXIS
     Dosage: UNK
  3. XARELTO [Suspect]
     Active Substance: RIVAROXABAN
     Indication: ATRIAL FIBRILLATION
     Dosage: UNK
  4. CRESTOR [Concomitant]
     Active Substance: ROSUVASTATIN CALCIUM
     Indication: HYPERLIPIDAEMIA
     Dosage: 40 MG, UNK
     Route: 065
  5. VITAMIN D [VITAMIN D NOS] [Concomitant]
     Active Substance: VITAMIN D NOS
     Indication: PRODUCT USED FOR UNKNOWN INDICATION
     Dosage: UNK
     Route: 065
  6. XARELTO [Suspect]
     Active Substance: RIVAROXABAN
     Indication: CEREBROVASCULAR ACCIDENT PROPHYLAXIS
     Dosage: 20 MG, UNK
     Route: 048
     Dates: start: 20160211, end: 20160326
  7. GENUINE BAYER ASPIRIN [Suspect]
     Active Substance: ASPIRIN
     Indication: ATRIAL FIBRILLATION
     Dosage: 325 MG, QD
     Route: 065
  8. IRBESARTAN. [Concomitant]
     Active Substance: IRBESARTAN
     Indication: HYPERTENSION
     Dosage: 150 MG, UNK
     Route: 065
     Dates: start: 20151121
  9. LOPRESSOR [Concomitant]
     Active Substance: METOPROLOL TARTRATE
     Indication: HYPERTENSION
     Dosage: UNK
     Route: 065
  10. XANAX [Concomitant]
     Active Substance: ALPRAZOLAM
     Indication: DEMENTIA
     Dosage: 20 MG, UNK
     Route: 065

REACTIONS (2)
  - Gastrointestinal haemorrhage [Unknown]
  - Gastrointestinal vascular malformation haemorrhagic [Recovering/Resolving]

NARRATIVE: CASE EVENT DATE: 20160326
